FAERS Safety Report 22660809 (Version 1)
Quarter: 2023Q2

REPORT INFORMATION
  Report Type: Spontaneous
  Country: IT (occurrence: IT)
  Receive Date: 20230630
  Receipt Date: 20230630
  Transmission Date: 20230722
  Serious: Yes (Other)
  Sender: FDA-Public Use
  Company Number: IT-SUN PHARMACEUTICAL INDUSTRIES LTD-2023RR-396834

PATIENT
  Age: 37 Year
  Sex: Male

DRUGS (1)
  1. OCTREOTIDE [Suspect]
     Active Substance: OCTREOTIDE
     Indication: Acromegaly
     Dosage: 30 MILLIGRAM, 1 DOSE/3 WEEKS
     Route: 065

REACTIONS (1)
  - Therapeutic product effect incomplete [Unknown]
